FAERS Safety Report 16878202 (Version 3)
Quarter: 2019Q4

REPORT INFORMATION
  Report Type: Spontaneous
  Country: US (occurrence: US)
  Receive Date: 20191002
  Receipt Date: 20191113
  Transmission Date: 20200122
  Serious: Yes (Death, Hospitalization)
  Sender: FDA-Public Use
  Company Number: US-PFIZER INC-2019424902

PATIENT
  Age: 68 Year
  Sex: Female
  Weight: 63.5 kg

DRUGS (26)
  1. IRON [Suspect]
     Active Substance: IRON
     Indication: ACNE
  2. PROZAC [Suspect]
     Active Substance: FLUOXETINE HYDROCHLORIDE
     Indication: PAIN
  3. IRON [Suspect]
     Active Substance: IRON
     Indication: PAIN
     Dosage: UNK
     Route: 048
     Dates: start: 20150616, end: 20190819
  4. PANTOPRAZOLE [Suspect]
     Active Substance: PANTOPRAZOLE
     Indication: PAIN
     Dosage: 0.5 MG, 4X/DAY
     Route: 048
     Dates: start: 20160712, end: 20190819
  5. PANTOPRAZOLE [Suspect]
     Active Substance: PANTOPRAZOLE
     Indication: GASTROOESOPHAGEAL REFLUX DISEASE
     Dosage: 20 MG, 1X/DAY
     Dates: start: 20190712
  6. PROZAC [Suspect]
     Active Substance: FLUOXETINE HYDROCHLORIDE
     Indication: ACNE
  7. RETIN-A [Suspect]
     Active Substance: TRETINOIN
     Indication: GASTROOESOPHAGEAL REFLUX DISEASE
     Dosage: UNK
     Route: 048
     Dates: start: 20150616, end: 20190819
  8. CYMBALTA [Suspect]
     Active Substance: DULOXETINE HYDROCHLORIDE
     Indication: GASTROOESOPHAGEAL REFLUX DISEASE
     Dosage: UNK
     Route: 048
     Dates: start: 20150616, end: 20190819
  9. PANTOPRAZOLE [Suspect]
     Active Substance: PANTOPRAZOLE
     Indication: ACNE
     Dosage: UNK
     Route: 048
     Dates: start: 20150616, end: 20190819
  10. POTASSIUM CHLORIDE. [Suspect]
     Active Substance: POTASSIUM CHLORIDE
     Indication: PAIN
     Dosage: UNK
     Route: 048
     Dates: start: 20150616, end: 20190819
  11. HYDROCODONE [Suspect]
     Active Substance: HYDROCODONE
     Indication: ACNE
  12. PROZAC [Suspect]
     Active Substance: FLUOXETINE HYDROCHLORIDE
     Indication: GASTROOESOPHAGEAL REFLUX DISEASE
  13. IRON [Suspect]
     Active Substance: IRON
     Indication: GASTROOESOPHAGEAL REFLUX DISEASE
  14. RETIN-A [Suspect]
     Active Substance: TRETINOIN
     Indication: PAIN
     Dosage: UNK(CREAM USED AT BEDTIME)
     Dates: start: 20131023
  15. CYMBALTA [Suspect]
     Active Substance: DULOXETINE HYDROCHLORIDE
     Indication: DEPRESSION
     Dosage: 60 MG, 1X/DAY
  16. CYMBALTA [Suspect]
     Active Substance: DULOXETINE HYDROCHLORIDE
     Indication: PAIN
     Dosage: 30 MG, 1X/DAY
  17. POTASSIUM CHLORIDE. [Suspect]
     Active Substance: POTASSIUM CHLORIDE
     Indication: GASTROOESOPHAGEAL REFLUX DISEASE
  18. PROZAC [Suspect]
     Active Substance: FLUOXETINE HYDROCHLORIDE
     Indication: MAJOR DEPRESSION
     Dosage: 10 MG, 1X/DAY
     Route: 048
     Dates: start: 20150616, end: 20190819
  19. IRON [Suspect]
     Active Substance: IRON
     Indication: IRON DEFICIENCY ANAEMIA
     Dosage: 325 MG, 1X/DAY
     Dates: start: 20190110
  20. HYDROCODONE [Suspect]
     Active Substance: HYDROCODONE
     Indication: INTERVERTEBRAL DISC DISORDER
     Dosage: UNK(10/325MG TAKEN ONCE EVERY 4 HOURS)
  21. HYDROCODONE [Suspect]
     Active Substance: HYDROCODONE
     Indication: PAIN
     Dosage: UNK
     Route: 048
     Dates: start: 20150616, end: 20190819
  22. RETIN-A [Suspect]
     Active Substance: TRETINOIN
     Indication: ACNE
  23. POTASSIUM CHLORIDE. [Suspect]
     Active Substance: POTASSIUM CHLORIDE
     Indication: HYPOKALAEMIA
     Dosage: 20 MEQ, 2X/DAY(WITH MEALS)
     Dates: start: 20190712
  24. POTASSIUM CHLORIDE. [Suspect]
     Active Substance: POTASSIUM CHLORIDE
     Indication: ACNE
  25. HYDROCODONE [Suspect]
     Active Substance: HYDROCODONE
     Indication: GASTROOESOPHAGEAL REFLUX DISEASE
  26. CYMBALTA [Suspect]
     Active Substance: DULOXETINE HYDROCHLORIDE
     Indication: ACNE

REACTIONS (4)
  - Completed suicide [Fatal]
  - Product use in unapproved indication [Unknown]
  - Suicide attempt [Unknown]
  - Off label use [Unknown]

NARRATIVE: CASE EVENT DATE: 20190630
